FAERS Safety Report 8603287-4 (Version None)
Quarter: 2012Q3

REPORT INFORMATION
  Report Type: 
  Country: None (occurrence: None)
  Receive Date: 20120817
  Receipt Date: 20120807
  Transmission Date: 20120928
  Serious: Yes (Other)
  Sender: FDA-Public Use
  Company Number: GB-ABBOTT-12P-167-0939551-00

PATIENT
  Sex: Female
  Weight: 84.3 kg

DRUGS (5)
  1. FOLIC ACID [Concomitant]
     Indication: PRODUCT USED FOR UNKNOWN INDICATION
     Route: 048
  2. HUMIRA [Suspect]
     Indication: RHEUMATOID ARTHRITIS
     Dosage: EVERY FORTNIGHT
     Route: 030
     Dates: start: 20120312
  3. ACETAMINOPHEN [Concomitant]
     Indication: RHEUMATOID ARTHRITIS
     Dosage: QDS, AS REQUIRED
     Route: 048
  4. METHOTREXATE [Concomitant]
     Indication: RHEUMATOID ARTHRITIS
     Route: 048
  5. TRAMADOL HCL [Concomitant]
     Indication: RHEUMATOID ARTHRITIS
     Dosage: BD, MR
     Route: 048

REACTIONS (4)
  - ILL-DEFINED DISORDER [None]
  - MIGRAINE [None]
  - NAUSEA [None]
  - HEADACHE [None]
